FAERS Safety Report 7568125-X (Version None)
Quarter: 2011Q2

REPORT INFORMATION
  Report Type: 
  Country: None (occurrence: None)
  Receive Date: 20110616
  Receipt Date: 20110606
  Transmission Date: 20111010
  Serious: Yes (Hospitalization)
  Sender: FDA-Public Use
  Company Number: B0646459A

PATIENT
  Sex: Female
  Weight: 64.7737 kg

DRUGS (10)
  1. NICAMETATE CITRATE [Concomitant]
  2. PREDNISOLONE [Concomitant]
  3. NIFEDIPINE [Concomitant]
  4. COLCHICINE [Concomitant]
  5. ATENOLOL [Concomitant]
  6. VALSARTAN [Concomitant]
  7. BETA-BLOCKER [Concomitant]
  8. PROMACTA [Suspect]
     Indication: PRODUCT USED FOR UNKNOWN INDICATION
     Dosage: PER DAY/ ORAL
     Route: 048
     Dates: start: 20100302
  9. ALPRAZOLAM [Concomitant]
  10. DICLOFENAC SODIUM [Concomitant]

REACTIONS (17)
  - ANTIPHOSPHOLIPID SYNDROME [None]
  - NAUSEA [None]
  - VOMITING [None]
  - BLEEDING TIME PROLONGED [None]
  - DEHYDRATION [None]
  - PLATELET COUNT DECREASED [None]
  - HYPERTENSION [None]
  - BLOOD GLUCOSE INCREASED [None]
  - NEUTROPHIL PERCENTAGE INCREASED [None]
  - LYMPHOCYTE PERCENTAGE DECREASED [None]
  - ANAEMIA [None]
  - THROMBOCYTOPENIA [None]
  - HAEMODIALYSIS [None]
  - FIBRIN D DIMER DECREASED [None]
  - BLOOD SODIUM INCREASED [None]
  - RENAL FAILURE ACUTE [None]
  - HAEMATOCRIT DECREASED [None]
